FAERS Safety Report 8440685 (Version 2)
Quarter: 2012Q4

REPORT INFORMATION
  Report Type: 
  Country: US (occurrence: US)
  Receive Date: 20120305
  Receipt Date: 20121017
  Transmission Date: 20130627
  Serious: Yes (Other)
  Sender: FDA-Public Use
  Company Number: US-ROCHE-784605

PATIENT
  Age: 17 Year
  Sex: Male
  Weight: 77.18 kg

DRUGS (2)
  1. ACCUTANE [Suspect]
     Indication: ACNE
     Route: 048
     Dates: start: 199912, end: 200005
  2. MINOCYCLINE [Concomitant]
     Indication: PRODUCT USED FOR UNKNOWN INDICATION

REACTIONS (6)
  - Crohn^s disease [Unknown]
  - Stress [Unknown]
  - Inflammatory bowel disease [Unknown]
  - Dry skin [Unknown]
  - Lip dry [Unknown]
  - Haemorrhoids [Unknown]
